FAERS Safety Report 8663580 (Version 5)
Quarter: 2012Q4

REPORT INFORMATION
  Report Type: 
  Country: US (occurrence: US)
  Receive Date: 20120713
  Receipt Date: 20121016
  Transmission Date: 20130627
  Serious: Yes (Other)
  Sender: FDA-Public Use
  Company Number: PHEH2012US013668

PATIENT
  Age: 46 Year
  Sex: Female
  Weight: 70.3 kg

DRUGS (9)
  1. GILENYA [Suspect]
     Indication: MULTIPLE SCLEROSIS
     Dosage: 0.5 mg, QD
     Route: 048
     Dates: start: 20120629
  2. AMBIEN [Concomitant]
     Dosage: 10 mg, UNK
     Route: 048
  3. NEURONTIN [Concomitant]
     Dosage: 100 mg, UNK
     Route: 048
  4. VICODIN [Concomitant]
     Dosage: 1 DF, UNK
  5. LORAZEPAM [Concomitant]
     Dosage: 0.5 mg, UNK
     Route: 048
  6. IBUPROFEN [Concomitant]
     Dosage: 200 mg, UNK
     Route: 048
  7. BUPROPION HYDROCHLORIDE [Concomitant]
     Dosage: 100 mg, UNK
     Route: 048
  8. VITAMIN D3 [Concomitant]
     Dosage: 1000 U, UNK
  9. NUVIGIL [Concomitant]
     Indication: SOMNOLENCE
     Dosage: 150 mg, UNK

REACTIONS (11)
  - Arrhythmia supraventricular [Unknown]
  - Multiple sclerosis [Unknown]
  - Central nervous system lesion [Unknown]
  - Sinus tachycardia [Unknown]
  - Fatigue [Unknown]
  - Frustration [Unknown]
  - Somnolence [Not Recovered/Not Resolved]
  - Vertigo [Unknown]
  - Depression [Recovered/Resolved]
  - Dizziness [Unknown]
  - Weight decreased [Not Recovered/Not Resolved]
